FAERS Safety Report 18764971 (Version 2)
Quarter: 2021Q1

REPORT INFORMATION
  Report Type: Spontaneous
  Country: US (occurrence: US)
  Receive Date: 20210120
  Receipt Date: 20210127
  Transmission Date: 20210419
  Serious: No
  Sender: FDA-Public Use
  Company Number: US-PFIZER INC-2021035153

PATIENT
  Age: 19 Year
  Sex: Male

DRUGS (1)
  1. RETACRIT [Suspect]
     Active Substance: EPOETIN ALFA-EPBX
     Indication: HAEMOGLOBIN DECREASED
     Dosage: 10,000 UNITS

REACTIONS (1)
  - Drug ineffective [Unknown]
